FAERS Safety Report 13358379 (Version 1)
Quarter: 2017Q1

REPORT INFORMATION
  Report Type: Spontaneous
  Country: US (occurrence: US)
  Receive Date: 20170321
  Receipt Date: 20170321
  Transmission Date: 20170429
  Serious: Yes (Hospitalization)
  Sender: FDA-Public Use
  Company Number: None

PATIENT
  Age: 80 Year
  Sex: Male
  Weight: 112.5 kg

DRUGS (6)
  1. LISNOPRIL HCTZ [Concomitant]
  2. ACETAMINOPHEN PM [Concomitant]
     Active Substance: ACETAMINOPHEN\DIPHENHYDRAMINE HYDROCHLORIDE
  3. GABAPENTIN 300MG AAAAAAAAAAAASC [Suspect]
     Active Substance: GABAPENTIN
     Indication: PARAESTHESIA
     Dosage: ?          QUANTITY:60 CAPSULE(S);?
     Route: 048
     Dates: start: 20170216, end: 20170316
  4. ACETAMINOPHEN. [Concomitant]
     Active Substance: ACETAMINOPHEN
  5. ALLOPURINOL. [Concomitant]
     Active Substance: ALLOPURINOL
  6. PREDNISONE. [Concomitant]
     Active Substance: PREDNISONE

REACTIONS (4)
  - Dry mouth [None]
  - Myalgia [None]
  - Peripheral swelling [None]
  - Headache [None]

NARRATIVE: CASE EVENT DATE: 20170318
